FAERS Safety Report 4428827-0 (Version None)
Quarter: 2004Q3

REPORT INFORMATION
  Report Type: 
  Country: None (occurrence: None)
  Receive Date: 20040818
  Receipt Date: 20040804
  Transmission Date: 20050211
  Serious: Yes (Other)
  Sender: FDA-Public Use
  Company Number: JP-GLAXOSMITHKLINE-B0341882A

PATIENT
  Age: 28 Year
  Sex: Male

DRUGS (7)
  1. EPIVIR [Suspect]
     Indication: ACQUIRED IMMUNODEFICIENCY SYNDROME
     Dosage: 150MG TWICE PER DAY
     Route: 048
     Dates: start: 20030601
  2. ZERIT [Suspect]
     Indication: ACQUIRED IMMUNODEFICIENCY SYNDROME
     Route: 048
     Dates: start: 20030601
  3. VIRACEPT [Suspect]
     Indication: ACQUIRED IMMUNODEFICIENCY SYNDROME
     Route: 048
     Dates: start: 20030601
  4. CYANOCOBALAMIN [Concomitant]
     Indication: HYPOAESTHESIA
     Dosage: 50MCG TWICE PER DAY
     Route: 065
     Dates: start: 20030601
  5. LOPEMIN [Concomitant]
     Indication: DIARRHOEA
     Dosage: 1MG TWICE PER DAY
     Route: 048
     Dates: start: 20030601
  6. SAWACILLIN [Concomitant]
     Indication: ERYTHEMA
     Dosage: 250MG THREE TIMES PER DAY
     Route: 048
     Dates: start: 20030821
  7. SAWACILLIN [Concomitant]
     Dosage: 250MG THREE TIMES PER DAY
     Route: 048
     Dates: start: 20040227

REACTIONS (5)
  - ALANINE AMINOTRANSFERASE INCREASED [None]
  - ASPARTATE AMINOTRANSFERASE INCREASED [None]
  - BLOOD ALKALINE PHOSPHATASE INCREASED [None]
  - BLOOD LACTATE DEHYDROGENASE INCREASED [None]
  - LIVER DISORDER [None]
